APPROVED DRUG PRODUCT: MESALAMINE
Active Ingredient: MESALAMINE
Strength: 1GM
Dosage Form/Route: SUPPOSITORY;RECTAL
Application: A208953 | Product #001 | TE Code: AB
Applicant: ZYDUS PHARMACEUTICALS USA INC
Approved: Feb 12, 2020 | RLD: No | RS: No | Type: RX